FAERS Safety Report 15101613 (Version 3)
Quarter: 2019Q1

REPORT INFORMATION
  Report Type: Spontaneous
  Country: US (occurrence: US)
  Receive Date: 20180703
  Receipt Date: 20190110
  Transmission Date: 20190417
  Serious: No
  Sender: FDA-Public Use
  Company Number: US-PFIZER INC-2018091222

PATIENT
  Age: 54 Year
  Sex: Female
  Weight: 80.73 kg

DRUGS (2)
  1. TAXOTERE [Suspect]
     Active Substance: DOCETAXEL
     Indication: BREAST CANCER FEMALE
     Dosage: 3 (UNIT: UNKNOWN), CYCLIC (3 CYCLES, EVERY 3 WEEKS)
     Dates: start: 20111215, end: 20120125
  2. DOCETAXEL. [Suspect]
     Active Substance: DOCETAXEL
     Indication: BREAST CANCER FEMALE
     Dosage: 3 (UNIT: UNKNOWN), CYCLIC (3 CYCLES, EVERY 3 WEEKS)
     Dates: start: 20111215, end: 20120125

REACTIONS (4)
  - Hair disorder [Not Recovered/Not Resolved]
  - Alopecia [Not Recovered/Not Resolved]
  - Hair texture abnormal [Not Recovered/Not Resolved]
  - Hair colour changes [Not Recovered/Not Resolved]

NARRATIVE: CASE EVENT DATE: 20120101
